FAERS Safety Report 8974868 (Version 2)
Quarter: 2013Q1

REPORT INFORMATION
  Report Type: Spontaneous
  Country: FR (occurrence: FR)
  Receive Date: 20121220
  Receipt Date: 20130308
  Transmission Date: 20140127
  Serious: Yes (Hospitalization)
  Sender: FDA-Public Use
  Company Number: FR-NOVOPROD-366765

PATIENT
  Age: 51 Year
  Sex: Male

DRUGS (8)
  1. VICTOZA [Suspect]
     Indication: TYPE 2 DIABETES MELLITUS
     Dosage: UNKNOWN
     Route: 058
     Dates: end: 20121020
  2. DIAMICRON [Suspect]
     Indication: TYPE 2 DIABETES MELLITUS
     Route: 065
     Dates: end: 20121020
  3. FLUDEX                             /00340101/ [Concomitant]
  4. LERCAN [Concomitant]
  5. LIPANTHYL [Concomitant]
  6. STAGID [Concomitant]
  7. REVIA [Concomitant]
  8. CALCIPRAT D3 [Concomitant]

REACTIONS (3)
  - Hepatocellular injury [Recovered/Resolved]
  - Hypokalaemia [Recovered/Resolved]
  - Hyponatraemia [Recovered/Resolved]
